FAERS Safety Report 16962104 (Version 1)
Quarter: 2019Q4

REPORT INFORMATION
  Report Type: Spontaneous
  Country: US (occurrence: US)
  Receive Date: 20190907
  Receipt Date: 20190907
  Transmission Date: 20200122
  Serious: No
  Sender: FDA-Public Use
  Company Number: None

PATIENT
  Age: 83 Year
  Sex: Female

DRUGS (4)
  1. AMLODIPINE [Concomitant]
     Active Substance: AMLODIPINE BESYLATE
  2. ROSUVASTATIN. [Concomitant]
     Active Substance: ROSUVASTATIN
  3. CAPECITABINE TAB 500MG [Suspect]
     Active Substance: CAPECITABINE
     Indication: NEOPLASM MALIGNANT
     Route: 048
     Dates: start: 201903, end: 20190906
  4. CARVEDILOL. [Concomitant]
     Active Substance: CARVEDILOL

REACTIONS (3)
  - Blister [None]
  - Hypoaesthesia [None]
  - Pain in extremity [None]

NARRATIVE: CASE EVENT DATE: 20190906
